FAERS Safety Report 21365654 (Version 4)
Quarter: 2022Q4

REPORT INFORMATION
  Report Type: Report from Study
  Country: US (occurrence: US)
  Receive Date: 20220922
  Receipt Date: 20221125
  Transmission Date: 20230113
  Serious: Yes (Other)
  Sender: FDA-Public Use
  Company Number: US-ABBVIE-22K-163-4489629-00

PATIENT
  Sex: Female

DRUGS (3)
  1. HUMIRA [Suspect]
     Active Substance: ADALIMUMAB
     Indication: Rheumatoid arthritis
     Route: 058
  2. MODERNA COVID-19 VACCINE [Concomitant]
     Active Substance: ELASOMERAN
     Indication: COVID-19 immunisation
     Dosage: 1 IN ONCE
     Route: 030
  3. MODERNA COVID-19 VACCINE [Concomitant]
     Active Substance: ELASOMERAN
     Indication: COVID-19 immunisation
     Dosage: BOOSTER DOSE?1 IN ONCE
     Route: 030

REACTIONS (3)
  - Localised infection [Recovered/Resolved]
  - Pain in extremity [Unknown]
  - Pneumonia [Unknown]

NARRATIVE: CASE EVENT DATE: 20220101
